FAERS Safety Report 7751863-3 (Version None)
Quarter: 2011Q3

REPORT INFORMATION
  Report Type: 
  Country: None (occurrence: None)
  Receive Date: 20110914
  Receipt Date: 20110914
  Transmission Date: 20111222
  Serious: No
  Sender: FDA-Public Use
  Company Number: None

PATIENT
  Age: 57 Year
  Sex: Female
  Weight: 73.3 kg

DRUGS (1)
  1. RITUXIMAB [Suspect]
     Dosage: 1000 MG IV
     Route: 042
     Dates: start: 20110601, end: 20110705

REACTIONS (1)
  - URTICARIA [None]
